FAERS Safety Report 7752679-4 (Version None)
Quarter: 2011Q3

REPORT INFORMATION
  Report Type: 
  Country: None (occurrence: None)
  Receive Date: 20110915
  Receipt Date: 20110902
  Transmission Date: 20111222
  Serious: Yes (Hospitalization)
  Sender: FDA-Public Use
  Company Number: DE-PFIZER INC-A108116

PATIENT
  Age: 65 Year
  Sex: Male

DRUGS (2)
  1. VIAGRA [Suspect]
     Dates: start: 20010201
  2. CERIVASTATIN [Interacting]
     Indication: HYPERLIPIDAEMIA
     Dosage: 0.8 MG, UNK
     Route: 048
     Dates: start: 20010206, end: 20010307

REACTIONS (2)
  - DRUG INTERACTION [None]
  - RHABDOMYOLYSIS [None]
